FAERS Safety Report 12699836 (Version 1)
Quarter: 2016Q3

REPORT INFORMATION
  Report Type: Spontaneous
  Country: US (occurrence: US)
  Receive Date: 20160830
  Receipt Date: 20160830
  Transmission Date: 20161109
  Serious: Yes (Life-Threatening, Other)
  Sender: FDA-Public Use
  Company Number: US-MYLANLABS-2016M1036589

PATIENT

DRUGS (3)
  1. ETOPOSIDE. [Concomitant]
     Active Substance: ETOPOSIDE
     Indication: NEUROBLASTOMA RECURRENT
     Route: 065
  2. IFOSFAMIDE. [Suspect]
     Active Substance: IFOSFAMIDE
     Indication: NEUROBLASTOMA RECURRENT
     Dosage: 2000MG/M2/DOSE RUN OVER 1 HOUR EACH DAY, 3 DOSES OVER 3 DAYS
     Route: 065
  3. CARBOPLATIN. [Concomitant]
     Active Substance: CARBOPLATIN
     Indication: NEUROBLASTOMA RECURRENT
     Dosage: DOSED USING AN AUC OF 6
     Route: 065

REACTIONS (1)
  - Encephalopathy [Recovered/Resolved]
